FAERS Safety Report 5479427-5 (Version None)
Quarter: 2007Q4

REPORT INFORMATION
  Report Type: 
  Country: None (occurrence: None)
  Receive Date: 20071008
  Receipt Date: 20070926
  Transmission Date: 20080405
  Serious: Yes (Other)
  Sender: FDA-Public Use
  Company Number: CA-ELI_LILLY_AND_COMPANY-CA200709006597

PATIENT
  Sex: Female

DRUGS (6)
  1. FORTEO [Suspect]
     Indication: OSTEOPOROSIS
     Dosage: 20 UG, DAILY (1/D)
     Route: 058
     Dates: start: 20060425
  2. METAMUCIL [Concomitant]
  3. ESTROGEN NOS [Concomitant]
     Route: 061
  4. CALCIUM [Concomitant]
  5. ANTIHISTAMINES [Concomitant]
     Dosage: UNK, AS NEEDED
  6. VITAMIN D [Concomitant]

REACTIONS (1)
  - MALIGNANT MELANOMA [None]
